FAERS Safety Report 9374352 (Version 2)
Quarter: 2013Q3

REPORT INFORMATION
  Report Type: Report from Study
  Country: CA (occurrence: CA)
  Receive Date: 20130628
  Receipt Date: 20130802
  Transmission Date: 20140515
  Serious: No
  Sender: FDA-Public Use
  Company Number: PHHY2013CA066176

PATIENT
  Age: 57 Year
  Sex: Female

DRUGS (1)
  1. GILENYA [Suspect]
     Indication: RELAPSING-REMITTING MULTIPLE SCLEROSIS
     Dosage: 0.5 MG, QD
     Route: 048
     Dates: start: 20120808

REACTIONS (6)
  - Multiple sclerosis relapse [Recovered/Resolved with Sequelae]
  - Fall [Recovered/Resolved with Sequelae]
  - Bladder disorder [Recovered/Resolved with Sequelae]
  - Micturition urgency [Recovered/Resolved with Sequelae]
  - Pollakiuria [Recovered/Resolved with Sequelae]
  - Gait disturbance [Recovered/Resolved with Sequelae]
